FAERS Safety Report 8797944 (Version 2)
Quarter: 2013Q1

REPORT INFORMATION
  Report Type: Spontaneous
  Country: None (occurrence: US)
  Receive Date: 20120920
  Receipt Date: 20130211
  Transmission Date: 20140127
  Serious: Yes (Other)
  Sender: FDA-Public Use
  Company Number: US-ABBOTT-12P-163-0979404-00

PATIENT
  Age: 66 None
  Sex: Female
  Weight: 63.56 kg

DRUGS (2)
  1. TRILIPIX [Suspect]
     Indication: BLOOD CHOLESTEROL
     Dates: start: 20120807, end: 20120911
  2. LIPITOR [Concomitant]
     Indication: BLOOD CHOLESTEROL

REACTIONS (9)
  - Throat tightness [Unknown]
  - Cough [Unknown]
  - Pulmonary congestion [Unknown]
  - Wheezing [Unknown]
  - Cough [Unknown]
  - Wheezing [Unknown]
  - Bronchitis [Unknown]
  - Pyrexia [Unknown]
  - Respiratory tract congestion [Unknown]
